FAERS Safety Report 4372182-1 (Version None)
Quarter: 2004Q2

REPORT INFORMATION
  Report Type: 
  Country: None (occurrence: None)
  Receive Date: 20040607
  Receipt Date: 20040525
  Transmission Date: 20050107
  Serious: Yes (Hospitalization)
  Sender: FDA-Public Use
  Company Number: FR-GLAXOSMITHKLINE-B0333720A

PATIENT
  Age: 3 Year
  Sex: Female
  Weight: 18 kg

DRUGS (2)
  1. FLIXOTIDE [Suspect]
     Indication: ASTHMA
     Dosage: 1PUFF TWICE PER DAY
     Route: 055
  2. SEREVENT [Concomitant]
     Indication: ASTHMA
     Dosage: 2PUFF TWICE PER DAY
     Route: 055

REACTIONS (10)
  - CHEST WALL PAIN [None]
  - COUGH [None]
  - GENERAL PHYSICAL HEALTH DETERIORATION [None]
  - OTITIS MEDIA ACUTE [None]
  - PLEURAL EFFUSION [None]
  - PNEUMONIA [None]
  - PYREXIA [None]
  - RESPIRATION ABNORMAL [None]
  - STAPHYLOCOCCAL SEPSIS [None]
  - VOMITING [None]
